FAERS Safety Report 10045698 (Version 1)
Quarter: 2014Q1

REPORT INFORMATION
  Report Type: Spontaneous
  Country: US (occurrence: US)
  Receive Date: 20140328
  Receipt Date: 20140328
  Transmission Date: 20141002
  Serious: No
  Sender: FDA-Public Use
  Company Number: US-009507513-1403USA007700

PATIENT
  Age: 24 Year
  Sex: Female
  Weight: 138.32 kg

DRUGS (2)
  1. NEXPLANON [Suspect]
     Indication: CONTRACEPTION
     Dosage: UNK
     Route: 059
     Dates: start: 20140123
  2. NEXPLANON [Suspect]
     Dosage: UNK
     Dates: start: 20140129

REACTIONS (8)
  - Device breakage [Unknown]
  - Device difficult to use [Unknown]
  - Device difficult to use [Unknown]
  - Device deployment issue [Unknown]
  - Wrong technique in drug usage process [Unknown]
  - Medication error [Unknown]
  - Product quality issue [Unknown]
  - No adverse event [Unknown]
